FAERS Safety Report 15960537 (Version 1)
Quarter: 2019Q1

REPORT INFORMATION
  Report Type: Spontaneous
  Country: FR (occurrence: FR)
  Receive Date: 20190214
  Receipt Date: 20190214
  Transmission Date: 20190417
  Serious: Yes (Hospitalization)
  Sender: FDA-Public Use
  Company Number: FR-TEVA-2019-FR-1009610

PATIENT
  Age: 84 Year
  Sex: Female

DRUGS (8)
  1. ASPIRINE PROTECT 100 MG, COMPRIM? GASTRO-R?SISTANT [Suspect]
     Active Substance: ASPIRIN
     Indication: PRODUCT USED FOR UNKNOWN INDICATION
     Dosage: 100 MILLIGRAM DAILY; 1-0-0
     Route: 048
  2. SERESTA [Suspect]
     Active Substance: OXAZEPAM
     Indication: PRODUCT USED FOR UNKNOWN INDICATION
     Dosage: 8 DOSAGE FORMS DAILY; 2-0-2-4
     Route: 048
  3. DETENSIEL 10 MG, COMPRIM? PELLICUL? S?CABLE [Suspect]
     Active Substance: BISOPROLOL FUMARATE
     Indication: PRODUCT USED FOR UNKNOWN INDICATION
     Dosage: 10 MILLIGRAM DAILY; 1-0-0
     Route: 048
  4. STEOVESS 70 MG, COMPRIM? EFFERVESCENT [Suspect]
     Active Substance: ALENDRONATE SODIUM
     Indication: PRODUCT USED FOR UNKNOWN INDICATION
     Dosage: (WOULD NOT TAKE IT ANYMORE)
     Route: 048
  5. PARIET 20 MG, COMPRIM? GASTRO-R?SISTANT [Suspect]
     Active Substance: RABEPRAZOLE SODIUM
     Indication: PRODUCT USED FOR UNKNOWN INDICATION
     Dosage: 20 MILLIGRAM DAILY; 1-0-0
     Route: 048
  6. AMLOR 10 MG, G?LULE [Suspect]
     Active Substance: AMLODIPINE BESYLATE
     Indication: PRODUCT USED FOR UNKNOWN INDICATION
     Dosage: NOT INFORMED
     Route: 048
     Dates: end: 20180822
  7. CRESTOR [Suspect]
     Active Substance: ROSUVASTATIN CALCIUM
     Indication: PRODUCT USED FOR UNKNOWN INDICATION
     Dosage: 1 GRAM DAILY; 1-0-0
     Route: 048
  8. METFORMINE [Suspect]
     Active Substance: METFORMIN HYDROCHLORIDE
     Indication: PRODUCT USED FOR UNKNOWN INDICATION
     Dosage: 500 MILLIGRAM DAILY; 1-0-0
     Route: 048

REACTIONS (2)
  - Hypereosinophilic syndrome [Not Recovered/Not Resolved]
  - Pruritus [Not Recovered/Not Resolved]

NARRATIVE: CASE EVENT DATE: 201803
